FAERS Safety Report 18176018 (Version 1)
Quarter: 2020Q3

REPORT INFORMATION
  Report Type: Spontaneous
  Country: CA (occurrence: CA)
  Receive Date: 20200820
  Receipt Date: 20200820
  Transmission Date: 20201103
  Serious: Yes (Life-Threatening, Hospitalization)
  Sender: FDA-Public Use
  Company Number: CA-ACCORD-196158

PATIENT
  Age: 59 Year
  Sex: Female
  Weight: 88 kg

DRUGS (6)
  1. FAMOTIDINE. [Concomitant]
     Active Substance: FAMOTIDINE
  2. DOCETAXEL. [Concomitant]
     Active Substance: DOCETAXEL
     Dosage: SOLUTION INTRAVENOUS
  3. DEXAMETHASONE. [Concomitant]
     Active Substance: DEXAMETHASONE
     Dosage: LIQUID INTRA? ARTICULAR
  4. ONDANSETRON [Concomitant]
     Active Substance: ONDANSETRON
  5. CARBOPLATIN. [Suspect]
     Active Substance: CARBOPLATIN
     Indication: OVARIAN NEOPLASM
     Dosage: INJECTION BP,SOLUTION INTRAVENOUS, 1 EVERY 3 WEEKS
     Route: 042
  6. BENADRYL [Concomitant]
     Active Substance: DIPHENHYDRAMINE HYDROCHLORIDE

REACTIONS (4)
  - Resuscitation [Unknown]
  - Anaphylactic shock [Unknown]
  - Cardio-respiratory arrest [Unknown]
  - Therapeutic hypothermia [Unknown]
